FAERS Safety Report 12552198 (Version 1)
Quarter: 2016Q3

REPORT INFORMATION
  Report Type: Spontaneous
  Country: US (occurrence: US)
  Receive Date: 20160713
  Receipt Date: 20160713
  Transmission Date: 20161109
  Serious: No
  Sender: FDA-Public Use
  Company Number: US-BAYER-2016-135307

PATIENT
  Age: 29 Year

DRUGS (1)
  1. ALEVE [Suspect]
     Active Substance: NAPROXEN SODIUM
     Indication: PAIN
     Dosage: 9 DF, IN 12 HOURS
     Route: 048
     Dates: start: 20160706, end: 20160707

REACTIONS (1)
  - Product use issue [None]

NARRATIVE: CASE EVENT DATE: 20160706
